FAERS Safety Report 16714204 (Version 14)
Quarter: 2020Q2

REPORT INFORMATION
  Report Type: Report from Study
  Country: CN (occurrence: CN)
  Receive Date: 20190819
  Receipt Date: 20200608
  Transmission Date: 20200713
  Serious: Yes (Hospitalization)
  Sender: FDA-Public Use
  Company Number: CN-ROCHE-2372587

PATIENT
  Age: 33 Year
  Sex: Male
  Weight: 63 kg

DRUGS (44)
  1. MAGNESIUM ISOGLYCYRRHIZINATE [Concomitant]
     Active Substance: MAGNESIUM ISOGLYCYRRHIZINATE
     Indication: HEPATITIS VIRAL
     Route: 065
     Dates: start: 20190805, end: 20190812
  2. POLYENE PHOSPHATIDYLCHOLINE [Concomitant]
     Active Substance: PHOSPHOLIPID
     Indication: HEPATIC CIRRHOSIS
     Route: 065
     Dates: start: 20190805, end: 20190812
  3. INSULIN [Concomitant]
     Active Substance: INSULIN NOS
     Indication: DIABETES MELLITUS
     Route: 065
     Dates: start: 20191008, end: 20191011
  4. PREDNISONE ACETATE [Concomitant]
     Active Substance: PREDNISONE ACETATE
     Route: 048
     Dates: start: 20191008, end: 20191130
  5. MANNITOL. [Concomitant]
     Active Substance: MANNITOL
     Route: 065
     Dates: start: 20191111, end: 20191117
  6. CODEINE PHOSPHATE [Concomitant]
     Active Substance: CODEINE PHOSPHATE
     Route: 065
     Dates: start: 20191115, end: 20191115
  7. CALCIUM GLUCONATE. [Concomitant]
     Active Substance: CALCIUM GLUCONATE
     Route: 065
     Dates: start: 20191009, end: 20191009
  8. SILYMARIN [SILYBUM MARIANUM] [Concomitant]
     Indication: HEPATIC CIRRHOSIS
     Route: 065
     Dates: start: 20190419
  9. PANTOPRAZOLE SODIUM. [Concomitant]
     Active Substance: PANTOPRAZOLE SODIUM
     Indication: GASTROINTESTINAL DISORDER
     Route: 065
     Dates: start: 20191108, end: 20191108
  10. EDARAVONE [Concomitant]
     Active Substance: EDARAVONE
     Route: 065
     Dates: start: 20191114, end: 20191115
  11. EDARAVONE [Concomitant]
     Active Substance: EDARAVONE
     Route: 065
     Dates: start: 20191114, end: 20191114
  12. FUROSEMIDE. [Concomitant]
     Active Substance: FUROSEMIDE
     Indication: HEPATIC CIRRHOSIS
     Route: 065
     Dates: start: 20191108, end: 20191108
  13. ATEZOLIZUMAB. [Suspect]
     Active Substance: ATEZOLIZUMAB
     Indication: HEPATOCELLULAR CARCINOMA
     Dosage: ON DAY 1 OF EACH 21 DAY CYCLE?DATE OF MOST RECENT DOSE OF ATEZOLIZUMAB (1200 MG) PRIOR TO EVENT ONSE
     Route: 042
     Dates: start: 20190308
  14. PREDNISONE ACETATE [Concomitant]
     Active Substance: PREDNISONE ACETATE
     Route: 048
     Dates: start: 20190806, end: 20190809
  15. GINKGO BILOBA [Concomitant]
     Active Substance: GINKGO
     Route: 065
     Dates: start: 20191111, end: 20191111
  16. FUROSEMIDE. [Concomitant]
     Active Substance: FUROSEMIDE
     Route: 065
     Dates: start: 20191008, end: 20191008
  17. POLYENE PHOSPHATIDYLCHOLINE [Concomitant]
     Active Substance: PHOSPHOLIPID
     Indication: HEPATITIS B
     Route: 065
     Dates: start: 20191009, end: 20191011
  18. MAGNESIUM ISOGLYCYRRHIZINATE [Concomitant]
     Active Substance: MAGNESIUM ISOGLYCYRRHIZINATE
     Indication: HEPATITIS
     Route: 065
     Dates: start: 20191008, end: 20191011
  19. MORPHINE HYDROCHLORIDE [Concomitant]
     Active Substance: MORPHINE HYDROCHLORIDE
     Indication: PAIN
     Route: 065
     Dates: start: 20191108, end: 20191108
  20. FUROSEMIDE. [Concomitant]
     Active Substance: FUROSEMIDE
     Route: 065
     Dates: start: 20191010, end: 20191010
  21. ENTECAVIR. [Concomitant]
     Active Substance: ENTECAVIR
     Indication: HEPATITIS B
     Route: 065
     Dates: start: 201803, end: 20191015
  22. SODIUM AESCINATE [Concomitant]
     Active Substance: SODIUM ESCINATE
     Indication: PERIPHERAL VENOUS DISEASE
     Dosage: VENOUS REFLUX DISORDER
     Route: 065
     Dates: start: 20191008, end: 20191011
  23. TENOFOVIR DISOPROXIL FUMARATE. [Concomitant]
     Active Substance: TENOFOVIR DISOPROXIL FUMARATE
     Indication: HEPATITIS
     Route: 065
     Dates: start: 20191011
  24. OMEPRAZOLE MAGNESIUM. [Concomitant]
     Active Substance: OMEPRAZOLE MAGNESIUM
     Dosage: DISEASE OF THE STOMACH
     Route: 065
     Dates: start: 20191011
  25. URSODEOXYCHOLIC ACID [Concomitant]
     Active Substance: URSODIOL
     Indication: HEPATIC CIRRHOSIS
     Route: 065
     Dates: start: 20190805
  26. CALCIUM GLUCONATE. [Concomitant]
     Active Substance: CALCIUM GLUCONATE
     Route: 065
     Dates: start: 20191111, end: 20191111
  27. PRILOSEC [Concomitant]
     Active Substance: OMEPRAZOLE MAGNESIUM
     Route: 065
     Dates: start: 20191111, end: 20191117
  28. REDUCED GLUTATHIONE SODIUM [Concomitant]
     Active Substance: GLUTATHIONE
     Dosage: PROTECT LIVER TREATMENT
     Route: 065
     Dates: start: 20191107, end: 20191109
  29. MAGNESIUM ISOGLYCYRRHIZINATE [Concomitant]
     Active Substance: MAGNESIUM ISOGLYCYRRHIZINATE
     Route: 065
     Dates: start: 20191107, end: 20191109
  30. INSULIN [Concomitant]
     Active Substance: INSULIN NOS
     Route: 065
     Dates: start: 20191107, end: 20191109
  31. ASPIRIN [ACETYLSALICYLIC ACID] [Concomitant]
     Active Substance: ASPIRIN
     Dosage: REDUCES THE RISK OF A HEART ATTACK
     Route: 065
     Dates: start: 20191009, end: 20191011
  32. TROPISETRON [Concomitant]
     Active Substance: TROPISETRON
     Dosage: PREVENT NAUSEA AND VOMITING
     Route: 065
     Dates: start: 20191008, end: 20191008
  33. TROPISETRON [Concomitant]
     Active Substance: TROPISETRON
     Dosage: PREVENT NAUSEA AND VOMITING
     Route: 065
     Dates: start: 20191108, end: 20191108
  34. REDUCED GLUTATHIONE SODIUM [Concomitant]
     Active Substance: GLUTATHIONE
     Route: 065
     Dates: start: 20191111, end: 20191117
  35. POTASSIUM CHLORIDE. [Concomitant]
     Active Substance: POTASSIUM CHLORIDE
     Route: 065
     Dates: start: 20191114, end: 20191117
  36. REDUCED GLUTATHIONE SODIUM [Concomitant]
     Active Substance: GLUTATHIONE
     Dosage: PROTECT LIVER TREATMENT
     Route: 065
     Dates: start: 20191008, end: 20191011
  37. OMEPRAZOLE SODIUM [Concomitant]
     Active Substance: OMEPRAZOLE SODIUM
     Route: 065
     Dates: start: 20191111, end: 20191117
  38. DEXAMETHASONE SODIUM PHOSPHATE. [Concomitant]
     Active Substance: DEXAMETHASONE SODIUM PHOSPHATE
     Route: 042
     Dates: start: 20191111, end: 20191111
  39. BEVACIZUMAB. [Suspect]
     Active Substance: BEVACIZUMAB
     Indication: HEPATOCELLULAR CARCINOMA
     Dosage: ON DAY 1 OF EACH 21 DAY CYCLE?DATE OF MOST RECENT DOSE OF BEVACIZUMAB (1080 MG) PRIOR TO EVENT ONSET
     Route: 042
     Dates: start: 20190308
  40. BICYCLOL [Concomitant]
     Active Substance: BICYCLOL
     Indication: HEPATITIS B
     Dosage: PIECE
     Route: 065
     Dates: start: 201803
  41. ADEMETIONINE 1,4-BUTANEDISULFONATE [Concomitant]
     Indication: HEPATIC CIRRHOSIS
     Route: 065
     Dates: start: 20190805, end: 20190812
  42. OXYCODONE HYDROCHLORIDE. [Concomitant]
     Active Substance: OXYCODONE HYDROCHLORIDE
     Indication: PAIN
     Route: 065
     Dates: start: 20191009, end: 20191011
  43. AMBROXOL HYDROCHLORIDE [Concomitant]
     Active Substance: AMBROXOL HYDROCHLORIDE
     Route: 065
     Dates: start: 20191111, end: 20191117
  44. INDOMETACIN [Concomitant]
     Active Substance: INDOMETHACIN
     Route: 065
     Dates: start: 20191111, end: 20191111

REACTIONS (3)
  - Blood bilirubin increased [Recovered/Resolved]
  - Cerebral infarction [Recovered/Resolved]
  - Aspartate aminotransferase increased [Not Recovered/Not Resolved]

NARRATIVE: CASE EVENT DATE: 20190801
